FAERS Safety Report 9224587 (Version 1)
Quarter: 2013Q1

REPORT INFORMATION
  Report Type: Spontaneous
  Country: US (occurrence: None)
  Receive Date: 20120917
  Receipt Date: 20120917
  Transmission Date: 20140127
  Serious: Yes (Other)
  Sender: FDA-Public Use
  Company Number: 1000027020

PATIENT
  Age: 39 Year
  Sex: Male

DRUGS (2)
  1. CELEXA [Suspect]
     Indication: DEPRESSION
     Dates: start: 201106, end: 201203
  2. FLONASE (FLUTICASONE PROPIONATE) [Concomitant]

REACTIONS (1)
  - Purpura [None]
